FAERS Safety Report 9458180 (Version 1)
Quarter: 2013Q3

REPORT INFORMATION
  Report Type: Spontaneous
  Country: AU (occurrence: AU)
  Receive Date: 20130814
  Receipt Date: 20130814
  Transmission Date: 20140515
  Serious: Yes (Death)
  Sender: FDA-Public Use
  Company Number: AU-ELI_LILLY_AND_COMPANY-AU201308001534

PATIENT
  Sex: Male

DRUGS (3)
  1. ZYPREXA RELPREVV [Suspect]
     Indication: SCHIZOPHRENIA
     Dosage: 300 MG, OTHER
     Route: 030
  2. ZYPREXA ZYDIS [Suspect]
     Dosage: 10 MG, EACH EVENING
  3. QUETIAPINE [Concomitant]
     Dosage: 25 MG, PRN

REACTIONS (1)
  - Completed suicide [Fatal]
